FAERS Safety Report 4757862-8 (Version None)
Quarter: 2005Q3

REPORT INFORMATION
  Report Type: 
  Country: None (occurrence: None)
  Receive Date: 20050826
  Receipt Date: 20050712
  Transmission Date: 20060218
  Serious: No
  Sender: FDA-Public Use
  Company Number: WAES 0507USA01544

PATIENT
  Age: 66 Year
  Sex: Female
  Weight: 53.978 kg

DRUGS (1)
  1. ZETIA [Suspect]
     Indication: BLOOD CHOLESTEROL INCREASED
     Dosage: 10 MG/DAILY
     Dates: start: 20050215, end: 20050426

REACTIONS (2)
  - MUSCLE SPASMS [None]
  - MYALGIA [None]
